FAERS Safety Report 10472547 (Version 1)
Quarter: 2014Q3

REPORT INFORMATION
  Report Type: Spontaneous
  Country: US (occurrence: US)
  Receive Date: 20140924
  Receipt Date: 20140924
  Transmission Date: 20150326
  Serious: No
  Sender: FDA-Public Use
  Company Number: US-PFIZER INC-2014260007

PATIENT
  Age: 42 Year
  Sex: Female
  Weight: 58.05 kg

DRUGS (9)
  1. LYRICA [Suspect]
     Active Substance: PREGABALIN
     Indication: BACK PAIN
     Dosage: 75 MG, 1X/DAY (AT NIGHT)
     Dates: start: 20140908, end: 20140912
  2. GAMMAGARD [Concomitant]
     Active Substance: HUMAN IMMUNOGLOBULIN G
     Indication: AUTOIMMUNE DISORDER
     Dosage: 30 G, EVERY 3 WEEKS
  3. LYRICA [Interacting]
     Active Substance: PREGABALIN
     Dosage: 75 MG, 2X/DAY
     Dates: start: 20140913
  4. XANAX [Interacting]
     Active Substance: ALPRAZOLAM
     Indication: TREMOR
     Dosage: 0.5 MG, EVERY SIX HOURS
  5. XANAX [Interacting]
     Active Substance: ALPRAZOLAM
     Indication: THYROID DISORDER
  6. CORGARD [Concomitant]
     Active Substance: NADOLOL
     Indication: HYPERTENSION
     Dosage: 20 MG, 1X/DAY (AT NIGHT)
  7. XANAX [Interacting]
     Active Substance: ALPRAZOLAM
     Indication: ADRENAL DISORDER
  8. XANAX [Interacting]
     Active Substance: ALPRAZOLAM
     Indication: AUTOIMMUNE DISORDER
  9. CORGARD [Concomitant]
     Active Substance: NADOLOL
     Indication: ADRENAL DISORDER

REACTIONS (3)
  - Dizziness [Not Recovered/Not Resolved]
  - Blood potassium decreased [Unknown]
  - Drug interaction [Not Recovered/Not Resolved]

NARRATIVE: CASE EVENT DATE: 201409
